FAERS Safety Report 11875258 (Version 1)
Quarter: 2015Q4

REPORT INFORMATION
  Report Type: Report from Study
  Country: JP (occurrence: JP)
  Receive Date: 20151229
  Receipt Date: 20151229
  Transmission Date: 20160305
  Serious: Yes (Other)
  Sender: FDA-Public Use
  Company Number: JP-ASTELLAS-2010JP000401

PATIENT
  Age: 65 Year
  Sex: Female
  Weight: 52 kg

DRUGS (35)
  1. GLUCOBAY [Concomitant]
     Active Substance: ACARBOSE
     Indication: PRODUCT USED FOR UNKNOWN INDICATION
     Route: 048
     Dates: end: 20071018
  2. JANUVIA [Concomitant]
     Active Substance: SITAGLIPTIN PHOSPHATE
     Indication: TYPE 2 DIABETES MELLITUS
     Route: 048
     Dates: start: 20110120
  3. HUSTAZOL                           /00398402/ [Concomitant]
     Route: 065
  4. GLUCOBAY [Concomitant]
     Active Substance: ACARBOSE
     Route: 048
     Dates: start: 20071019, end: 20110428
  5. AMARYL [Concomitant]
     Active Substance: GLIMEPIRIDE
     Route: 048
     Dates: start: 20080821, end: 20081121
  6. NOVORAPID [Concomitant]
     Active Substance: INSULIN ASPART
     Indication: TYPE 2 DIABETES MELLITUS
     Dosage: UNK UNK, UNKNOWN FREQ.
     Route: 042
     Dates: start: 20081126
  7. CLARITH [Concomitant]
     Active Substance: CLARITHROMYCIN
     Route: 065
  8. TACROLIMUS. [Suspect]
     Active Substance: TACROLIMUS
     Indication: LUPUS NEPHRITIS
     Route: 048
     Dates: start: 20070621
  9. CLARITH [Concomitant]
     Active Substance: CLARITHROMYCIN
     Indication: PHARYNGITIS
     Route: 065
  10. PL [Concomitant]
     Active Substance: ACETAMINOPHEN\CAFFEINE\PROMETHAZINE\SALICYLAMIDE
     Indication: PHARYNGITIS
     Route: 065
  11. HUSTAZOL                           /00398402/ [Concomitant]
     Route: 065
  12. MICARDIS [Concomitant]
     Active Substance: TELMISARTAN
     Indication: HYPERTENSION
     Route: 048
     Dates: end: 20080716
  13. ACTOS [Concomitant]
     Active Substance: PIOGLITAZONE HYDROCHLORIDE
     Indication: DIABETES MELLITUS
     Route: 048
     Dates: start: 20081121
  14. AMARYL [Concomitant]
     Active Substance: GLIMEPIRIDE
     Indication: TYPE 2 DIABETES MELLITUS
     Route: 048
     Dates: end: 20080716
  15. MICARDIS [Concomitant]
     Active Substance: TELMISARTAN
     Indication: HYPERTENSION
     Route: 048
     Dates: start: 20080717, end: 20080820
  16. ACTOS [Concomitant]
     Active Substance: PIOGLITAZONE HYDROCHLORIDE
     Indication: TYPE 2 DIABETES MELLITUS
     Route: 048
     Dates: end: 20081120
  17. EUGLUCON [Concomitant]
     Active Substance: GLYBURIDE
     Indication: DIABETES MELLITUS
     Route: 048
     Dates: start: 20081121, end: 20081122
  18. PREMINENT [Concomitant]
     Active Substance: HYDROCHLOROTHIAZIDE\LOSARTAN POTASSIUM
     Indication: HYPERTENSION
     Route: 048
     Dates: start: 20080821
  19. PL [Concomitant]
     Active Substance: ACETAMINOPHEN\CAFFEINE\PROMETHAZINE\SALICYLAMIDE
     Route: 065
  20. ARTIST [Concomitant]
     Active Substance: CARVEDILOL
     Indication: PRODUCT USED FOR UNKNOWN INDICATION
     Route: 048
  21. EUGLUCON [Concomitant]
     Active Substance: GLYBURIDE
     Indication: TYPE 2 DIABETES MELLITUS
     Route: 048
     Dates: start: 20071116, end: 20081120
  22. EUGLUCON [Concomitant]
     Active Substance: GLYBURIDE
     Route: 048
     Dates: start: 20081123, end: 20081126
  23. PL [Concomitant]
     Active Substance: ACETAMINOPHEN\CAFFEINE\PROMETHAZINE\SALICYLAMIDE
     Indication: UPPER RESPIRATORY TRACT INFLAMMATION
     Route: 065
  24. ZADITEN [Concomitant]
     Active Substance: KETOTIFEN FUMARATE
     Indication: SEASONAL ALLERGY
     Dosage: UNK UNK, UNKNOWN FREQ.
     Route: 065
  25. ALLELOCK [Concomitant]
     Active Substance: OLOPATADINE HYDROCHLORIDE
     Indication: SEASONAL ALLERGY
     Route: 065
  26. ALFAROL [Concomitant]
     Active Substance: ALFACALCIDOL
     Indication: PROPHYLAXIS
     Dosage: 0.25 ?G, ONCE DAILY
     Route: 048
  27. AMARYL [Concomitant]
     Active Substance: GLIMEPIRIDE
     Indication: DIABETES MELLITUS
     Route: 048
     Dates: start: 20080717, end: 20080820
  28. MICARDIS [Concomitant]
     Active Substance: TELMISARTAN
     Route: 048
     Dates: start: 20080821
  29. CLARITH [Concomitant]
     Active Substance: CLARITHROMYCIN
     Indication: UPPER RESPIRATORY TRACT INFLAMMATION
     Route: 065
  30. CLARITH [Concomitant]
     Active Substance: CLARITHROMYCIN
     Route: 065
  31. PL [Concomitant]
     Active Substance: ACETAMINOPHEN\CAFFEINE\PROMETHAZINE\SALICYLAMIDE
     Route: 065
  32. HUSTAZOL                           /00398402/ [Concomitant]
     Indication: UPPER RESPIRATORY TRACT INFLAMMATION
     Route: 065
  33. HUSTAZOL                           /00398402/ [Concomitant]
     Indication: PHARYNGITIS
     Route: 065
  34. ALLELOCK [Concomitant]
     Active Substance: OLOPATADINE HYDROCHLORIDE
     Route: 065
  35. CRAVIT [Concomitant]
     Active Substance: LEVOFLOXACIN
     Indication: UPPER RESPIRATORY TRACT INFLAMMATION
     Route: 065

REACTIONS (8)
  - Hypertension [Recovering/Resolving]
  - Upper respiratory tract inflammation [Recovered/Resolved]
  - Type 2 diabetes mellitus [Not Recovered/Not Resolved]
  - Pharyngitis [Recovering/Resolving]
  - Lacunar infarction [Not Recovered/Not Resolved]
  - Gallbladder polyp [Not Recovered/Not Resolved]
  - Seasonal allergy [Recovering/Resolving]
  - Beta 2 microglobulin urine increased [Recovered/Resolved]

NARRATIVE: CASE EVENT DATE: 20080221
